FAERS Safety Report 6549603-9 (Version None)
Quarter: 2010Q1

REPORT INFORMATION
  Report Type: 
  Country: None (occurrence: None)
  Receive Date: 20100125
  Receipt Date: 20100120
  Transmission Date: 20100710
  Serious: Yes (Death)
  Sender: FDA-Public Use
  Company Number: US-GILEAD-2010-0026374

PATIENT
  Sex: Male

DRUGS (10)
  1. LETAIRIS [Suspect]
     Indication: PULMONARY ARTERIAL HYPERTENSION
     Route: 048
     Dates: start: 20091015
  2. BUMEX [Concomitant]
  3. ALDACTONE [Concomitant]
  4. HYDRALAZINE [Concomitant]
  5. COREG [Concomitant]
  6. ISORDIL [Concomitant]
  7. OXYGEN [Concomitant]
  8. VITAMIN B COMPLEX CAP [Concomitant]
  9. CALCITRIOL [Concomitant]
  10. ASPIRIN [Concomitant]

REACTIONS (2)
  - PULMONARY ARTERIAL HYPERTENSION [None]
  - RESPIRATORY FAILURE [None]
